FAERS Safety Report 6435546-8 (Version None)
Quarter: 2009Q4

REPORT INFORMATION
  Report Type: 
  Country: None (occurrence: None)
  Receive Date: 20091111
  Receipt Date: 20091105
  Transmission Date: 20100525
  Serious: Yes (Other)
  Sender: FDA-Public Use
  Company Number: US-ASTRAZENECA-2008UW27536

PATIENT
  Age: 46 Year
  Sex: Female
  Weight: 81.6 kg

DRUGS (5)
  1. SEROQUEL [Suspect]
     Indication: DEPRESSION
     Route: 048
     Dates: start: 20040101, end: 20060401
  2. SEROQUEL [Suspect]
     Indication: MENTAL DISORDER
     Route: 048
     Dates: start: 20040101, end: 20060401
  3. HALDOL [Concomitant]
  4. RISPERDAL [Concomitant]
     Indication: MENTAL DISORDER
  5. ZYPREXA [Concomitant]

REACTIONS (3)
  - HIV INFECTION [None]
  - TARDIVE DYSKINESIA [None]
  - TYPE 2 DIABETES MELLITUS [None]
